FAERS Safety Report 6198723-X (Version None)
Quarter: 2009Q2

REPORT INFORMATION
  Report Type: 
  Country: None (occurrence: None)
  Receive Date: 20090519
  Receipt Date: 20090519
  Transmission Date: 20091009
  Serious: Yes (Death)
  Sender: FDA-Public Use
  Company Number: None

PATIENT
  Sex: Male
  Weight: 64 kg

DRUGS (3)
  1. CYTARABINE [Suspect]
     Indication: ACUTE MYELOID LEUKAEMIA
     Dosage: 20 MG/M2 SQ
     Route: 058
     Dates: start: 20090424, end: 20090429
  2. DECITABINE [Suspect]
     Indication: ACUTE MYELOID LEUKAEMIA
     Dosage: 20 MG/M2 IV
     Route: 042
     Dates: start: 20090424, end: 20090429
  3. NEUPOGEN [Concomitant]

REACTIONS (3)
  - BLOOD COUNT ABNORMAL [None]
  - DEMENTIA [None]
  - FEBRILE NEUTROPENIA [None]
